FAERS Safety Report 16653473 (Version 1)
Quarter: 2019Q3

REPORT INFORMATION
  Report Type: Spontaneous
  Country: ES (occurrence: ES)
  Receive Date: 20190731
  Receipt Date: 20190731
  Transmission Date: 20191004
  Serious: Yes (Other)
  Sender: FDA-Public Use
  Company Number: ES-PFIZER INC-2019323443

PATIENT
  Age: 25 Year
  Sex: Male

DRUGS (1)
  1. KETAMINE HCL [Suspect]
     Active Substance: KETAMINE HYDROCHLORIDE
     Indication: SUBSTANCE USE
     Dosage: 2 G, ALTERNATE DAY
     Route: 045
     Dates: start: 2005, end: 201907

REACTIONS (3)
  - Pollakiuria [Unknown]
  - Micturition urgency [Unknown]
  - Drug abuse [Unknown]

NARRATIVE: CASE EVENT DATE: 2005
